FAERS Safety Report 22318817 (Version 5)
Quarter: 2023Q2

REPORT INFORMATION
  Report Type: Report from Study
  Country: PA (occurrence: PA)
  Receive Date: 20230515
  Receipt Date: 20230627
  Transmission Date: 20230722
  Serious: Yes (Other)
  Sender: FDA-Public Use
  Company Number: PA-002147023-NVSC2023PA109947

PATIENT
  Age: 58 Year
  Sex: Female
  Weight: 82.281 kg

DRUGS (4)
  1. KISQALI [Suspect]
     Active Substance: RIBOCICLIB
     Indication: Breast cancer metastatic
     Dosage: 3 DOSAGE FORM, QD (FOR 21 DAYS)
     Route: 048
     Dates: start: 20230405
  2. KISQALI [Suspect]
     Active Substance: RIBOCICLIB
     Dosage: 600 MG, QD
     Route: 048
     Dates: start: 20230406
  3. KISQALI [Suspect]
     Active Substance: RIBOCICLIB
     Dosage: 600 MG, QD
     Route: 048
     Dates: start: 2023
  4. ANASTROZOLE [Concomitant]
     Active Substance: ANASTROZOLE
     Indication: Product used for unknown indication
     Dosage: 1 DOSAGE FORM, QD (FOR 28 DAYS)
     Route: 065

REACTIONS (12)
  - Flatulence [Unknown]
  - Pain in extremity [Not Recovered/Not Resolved]
  - Peripheral swelling [Unknown]
  - Vomiting [Not Recovered/Not Resolved]
  - Dyspnoea [Unknown]
  - Pigmentation disorder [Unknown]
  - Skin exfoliation [Unknown]
  - Abdominal distension [Unknown]
  - Limb discomfort [Unknown]
  - Diarrhoea [Not Recovered/Not Resolved]
  - Malaise [Unknown]
  - Gastritis [Unknown]

NARRATIVE: CASE EVENT DATE: 20230408
